FAERS Safety Report 8319955-8 (Version None)
Quarter: 2012Q2

REPORT INFORMATION
  Report Type: 
  Country: None (occurrence: None)
  Receive Date: 20120427
  Receipt Date: 20120413
  Transmission Date: 20120825
  Serious: Yes (Other)
  Sender: FDA-Public Use
  Company Number: US-ROCHE-784110

PATIENT
  Sex: Male
  Weight: 84.444 kg

DRUGS (4)
  1. ACCUTANE [Suspect]
     Indication: ACNE
     Route: 048
  2. ACCUTANE [Suspect]
  3. ACCUTANE [Suspect]
  4. ACCUTANE [Suspect]

REACTIONS (14)
  - INFLAMMATORY BOWEL DISEASE [None]
  - PANCREATITIS [None]
  - INTESTINAL OBSTRUCTION [None]
  - RECTAL FISSURE [None]
  - CHAPPED LIPS [None]
  - ALANINE AMINOTRANSFERASE INCREASED [None]
  - ANXIETY [None]
  - DRY SKIN [None]
  - COLITIS ULCERATIVE [None]
  - ASPARTATE AMINOTRANSFERASE INCREASED [None]
  - DEPRESSION [None]
  - INSOMNIA [None]
  - IRRITABLE BOWEL SYNDROME [None]
  - ALOPECIA EFFLUVIUM [None]
